FAERS Safety Report 14705615 (Version 3)
Quarter: 2018Q3

REPORT INFORMATION
  Report Type: Report from Study
  Country: EC (occurrence: EC)
  Receive Date: 20180402
  Receipt Date: 20180809
  Transmission Date: 20181010
  Serious: Yes (Hospitalization, Other)
  Sender: FDA-Public Use
  Company Number: PHHY2015EC113912

PATIENT
  Age: 34 Year
  Sex: Female

DRUGS (5)
  1. GLIVEC [Suspect]
     Active Substance: IMATINIB MESYLATE
     Dosage: 700 MG, QD (400 MG IN MORNING AND 300 MG IN AFTERNOON)
     Route: 048
     Dates: start: 20150507, end: 20150930
  2. GLIVEC [Suspect]
     Active Substance: IMATINIB MESYLATE
     Dosage: 400 MG, BID
     Route: 048
     Dates: start: 20151001, end: 20160921
  3. GLIVEC [Suspect]
     Active Substance: IMATINIB MESYLATE
     Dosage: 300 MG, BID
     Route: 048
     Dates: start: 20160922, end: 20170214
  4. GLIVEC [Suspect]
     Active Substance: IMATINIB MESYLATE
     Dosage: 400 MG, BID
     Route: 048
     Dates: start: 20170215, end: 20180612
  5. GLIVEC [Suspect]
     Active Substance: IMATINIB MESYLATE
     Indication: CHRONIC MYELOID LEUKAEMIA
     Dosage: 500 MG, QD
     Route: 048
     Dates: start: 20140917, end: 20150506

REACTIONS (14)
  - Gastritis [Unknown]
  - Pyrexia [Not Recovered/Not Resolved]
  - Anaemia [Recovered/Resolved]
  - Pneumonia [Unknown]
  - General physical health deterioration [Unknown]
  - Gastrointestinal disorder [Unknown]
  - Diarrhoea [Not Recovered/Not Resolved]
  - Gastrointestinal infection [Unknown]
  - Chills [Unknown]
  - Bone pain [Not Recovered/Not Resolved]
  - Vomiting [Not Recovered/Not Resolved]
  - Blast crisis in myelogenous leukaemia [Unknown]
  - Red blood cell count increased [Unknown]
  - Pharyngitis [Unknown]

NARRATIVE: CASE EVENT DATE: 20150912
